FAERS Safety Report 9254932 (Version 3)
Quarter: 2013Q2

REPORT INFORMATION
  Report Type: Spontaneous
  Country: US (occurrence: None)
  Receive Date: 20130418
  Receipt Date: 20130625
  Transmission Date: 20140414
  Serious: Yes (Hospitalization)
  Sender: FDA-Public Use
  Company Number: 2013P1004624

PATIENT
  Age: 51 Year
  Sex: Female

DRUGS (7)
  1. INFUMORPH [Suspect]
     Indication: PAIN
     Dates: start: 2008
  2. INFUMORPH [Suspect]
     Indication: INTERVERTEBRAL DISC DEGENERATION
     Dates: start: 2008
  3. INFUMORPH [Suspect]
     Indication: INTERVERTEBRAL DISC PROTRUSION
     Dates: start: 2008
  4. INFUMORPH [Suspect]
     Indication: PAIN
     Dates: start: 2008
  5. ABILIFY (ARIPIRAZOLE) [Concomitant]
  6. BUMEX (BUMETANIDE) [Concomitant]
  7. NOVOLOG (INSULIN ASPART) [Concomitant]

REACTIONS (5)
  - Overdose [None]
  - Mental status changes [None]
  - Depressed level of consciousness [None]
  - Nausea [None]
  - Diarrhoea [None]
